FAERS Safety Report 6673778-4 (Version None)
Quarter: 2010Q2

REPORT INFORMATION
  Report Type: 
  Country: None (occurrence: None)
  Receive Date: 20100407
  Receipt Date: 20100329
  Transmission Date: 20101027
  Serious: Yes (Other)
  Sender: FDA-Public Use
  Company Number: 2010SP018608

PATIENT
  Sex: Female

DRUGS (1)
  1. REMERGIL (MIRTAZAPINE /01293201/) [Suspect]
     Dosage: 15 MG; QD;
     Dates: start: 20100313

REACTIONS (3)
  - AGGRESSION [None]
  - AGITATION [None]
  - DEPRESSED MOOD [None]
